FAERS Safety Report 5513804-9 (Version None)
Quarter: 2007Q4

REPORT INFORMATION
  Report Type: 
  Country: None (occurrence: None)
  Receive Date: 20071105
  Receipt Date: 20070813
  Transmission Date: 20080405
  Serious: No
  Sender: FDA-Public Use
  Company Number: SPV1-2007-03833

PATIENT
  Age: 80 Year
  Sex: Male
  Weight: 60.8 kg

DRUGS (5)
  1. FOSRENOL [Suspect]
     Dosage: 1000 MG BID WITH NEPHRO SUPPLIMENT
     Dates: start: 20070701
  2. ISOSORBIDE       (ISOSORBIDE) [Concomitant]
  3. FLOMAX [Concomitant]
  4. NEPHRO                  (CALCIUM ACETATE) [Concomitant]
  5. ASPIRIN [Concomitant]

REACTIONS (2)
  - CONFUSIONAL STATE [None]
  - SOMNOLENCE [None]
